FAERS Safety Report 21750852 (Version 1)
Quarter: 2022Q4

REPORT INFORMATION
  Report Type: Report from Study
  Country: US (occurrence: US)
  Receive Date: 20221219
  Receipt Date: 20221219
  Transmission Date: 20230113
  Serious: Yes (Other)
  Sender: FDA-Public Use
  Company Number: US-ABBVIE-4242091

PATIENT
  Sex: Male

DRUGS (1)
  1. VENCLEXTA [Suspect]
     Active Substance: VENETOCLAX
     Indication: Chronic lymphocytic leukaemia
     Dosage: THE EVENT MICROGRAPHICALLY ORIENTED HISTOGRAPHIC SURGERY STARTED ON AN UNKNOWN DATE IN 2022.
     Route: 048
     Dates: start: 202208

REACTIONS (1)
  - Micrographic skin surgery [Unknown]
